FAERS Safety Report 5443219-3 (Version None)
Quarter: 2007Q3

REPORT INFORMATION
  Report Type: 
  Country: None (occurrence: None)
  Receive Date: 20070831
  Receipt Date: 20070821
  Transmission Date: 20080115
  Serious: Yes (Other)
  Sender: FDA-Public Use
  Company Number: 40122

PATIENT

DRUGS (2)
  1. PROCHLORPERAZINE EDISYLATE INJ [Suspect]
  2. EPHEDRINE SULFATE INJECTION, USP 50 MG/ML [Suspect]

REACTIONS (2)
  - CIRCUMSTANCE OR INFORMATION CAPABLE OF LEADING TO MEDICATION ERROR [None]
  - INTERCEPTED MEDICATION ERROR [None]
